FAERS Safety Report 6119659-6 (Version None)
Quarter: 2009Q1

REPORT INFORMATION
  Report Type: 
  Country: None (occurrence: None)
  Receive Date: 20090316
  Receipt Date: 20090305
  Transmission Date: 20090719
  Serious: Yes (Death, Life-Threatening, Hospitalization)
  Sender: FDA-Public Use
  Company Number: FR-JNJFOC-20090301433

PATIENT
  Age: 55 Year
  Sex: Male

DRUGS (9)
  1. REMICADE [Suspect]
     Dosage: 8TH INFUSION
     Route: 042
  2. REMICADE [Suspect]
     Indication: ANKYLOSING SPONDYLITIS
     Route: 042
  3. NOVATREX [Suspect]
     Route: 042
  4. NOVATREX [Suspect]
     Indication: DRUG USE FOR UNKNOWN INDICATION
     Route: 042
  5. NEXIUM [Concomitant]
  6. CORTANCYL [Concomitant]
  7. FOSAVANCE [Concomitant]
  8. LESCOL [Concomitant]
  9. ZAMUDOL [Concomitant]
     Dosage: DURATION: ^FOR A LONG TIME^

REACTIONS (2)
  - DEEP VEIN THROMBOSIS [None]
  - PULMONARY EMBOLISM [None]
